FAERS Safety Report 5565467-4 (Version None)
Quarter: 2007Q4

REPORT INFORMATION
  Report Type: 
  Country: None (occurrence: None)
  Receive Date: 20071218
  Receipt Date: 20061218
  Transmission Date: 20080405
  Serious: No
  Sender: FDA-Public Use
  Company Number: US-BAUSCH-2006BL006786

PATIENT
  Age: 54 Year
  Sex: Female

DRUGS (4)
  1. NEOMYCIN AND POLYMXIN B SULFATES AND HYDROCORTISONE [Suspect]
     Route: 047
     Dates: start: 20061218, end: 20061218
  2. ^RED YEAST RICE^ [Concomitant]
     Indication: VITAMIN SUPPLEMENTATION
  3. ONE-A-DAY [Concomitant]
     Indication: VITAMIN SUPPLEMENTATION
  4. MACROBID [Concomitant]

REACTIONS (4)
  - ABNORMAL SENSATION IN EYE [None]
  - APPLICATION SITE ANAESTHESIA [None]
  - EYE IRRITATION [None]
  - MEDICATION ERROR [None]
